FAERS Safety Report 6948369-8 (Version None)
Quarter: 2010Q3

REPORT INFORMATION
  Report Type: 
  Country: None (occurrence: None)
  Receive Date: 20100828
  Receipt Date: 20100120
  Transmission Date: 20110219
  Serious: No
  Sender: FDA-Public Use
  Company Number: US-ABBOTT-04P-163-0388710-00

PATIENT
  Sex: Male
  Weight: 70.37 kg

DRUGS (10)
  1. NIASPAN [Suspect]
     Indication: HIGH DENSITY LIPOPROTEIN DECREASED
     Route: 048
     Dates: start: 20050101
  2. ASPIRIN [Concomitant]
     Indication: PROPHYLAXIS
     Dates: start: 20040220
  3. ASPIRIN [Concomitant]
     Indication: FLUSHING
  4. MULTI-VITAMIN [Concomitant]
     Indication: SUPPLEMENTATION THERAPY
  5. FISH OIL [Concomitant]
     Indication: SUPPLEMENTATION THERAPY
  6. FISH OIL [Concomitant]
     Indication: ROUTINE HEALTH MAINTENANCE
  7. FOLIC ACID [Concomitant]
     Indication: SUPPLEMENTATION THERAPY
  8. FOLIC ACID [Concomitant]
     Indication: ROUTINE HEALTH MAINTENANCE
  9. LOVASTATIN [Concomitant]
     Indication: BLOOD CHOLESTEROL INCREASED
  10. LISINOPRIL [Concomitant]
     Indication: HYPERTENSION

REACTIONS (4)
  - FEELING HOT [None]
  - FLUSHING [None]
  - FORMICATION [None]
  - PRURITUS [None]
